FAERS Safety Report 13995868 (Version 1)
Quarter: 2017Q3

REPORT INFORMATION
  Report Type: Spontaneous
  Country: US (occurrence: US)
  Receive Date: 20170921
  Receipt Date: 20170921
  Transmission Date: 20171128
  Serious: Yes (Other)
  Sender: FDA-Public Use
  Company Number: US-AUROBINDO-AUR-APL-2017-40429

PATIENT
  Age: 20 Year
  Sex: Female
  Weight: 68 kg

DRUGS (2)
  1. DEXTROMETHORPHAN+PHENYLEPHRINE [Suspect]
     Active Substance: DEXTROMETHORPHAN\PHENYLEPHRINE
     Indication: OROPHARYNGEAL PAIN
     Dosage: 30 ML, UNK
     Route: 065
     Dates: start: 20170704, end: 20170704
  2. DEXTROMETHORPHAN+PHENYLEPHRINE [Suspect]
     Active Substance: DEXTROMETHORPHAN\PHENYLEPHRINE
     Indication: VIRAL UPPER RESPIRATORY TRACT INFECTION

REACTIONS (4)
  - Seizure [Recovered/Resolved]
  - Dizziness [Recovered/Resolved]
  - Lethargy [Recovered/Resolved]
  - Nausea [Recovered/Resolved]

NARRATIVE: CASE EVENT DATE: 20170704
